FAERS Safety Report 10889135 (Version 2)
Quarter: 2015Q2

REPORT INFORMATION
  Report Type: Spontaneous
  Country: IT (occurrence: IT)
  Receive Date: 20150305
  Receipt Date: 20150527
  Transmission Date: 20150821
  Serious: Yes (Hospitalization)
  Sender: FDA-Public Use
  Company Number: IT-ASTRAZENECA-2015SE19037

PATIENT
  Age: 32344 Day
  Sex: Male

DRUGS (4)
  1. AVODART [Concomitant]
     Active Substance: DUTASTERIDE
     Dosage: 0.5 MG SOFT CAPSULE
  2. OMEPRAZOLE. [Concomitant]
     Active Substance: OMEPRAZOLE
  3. CARDIOASPIRIN [Suspect]
     Active Substance: ASPIRIN
     Indication: CORONARY ANGIOPLASTY
     Route: 048
     Dates: start: 20141001
  4. BRILIQUE [Suspect]
     Active Substance: TICAGRELOR
     Indication: CORONARY ANGIOPLASTY
     Route: 048
     Dates: start: 20141001, end: 20150220

REACTIONS (2)
  - Anaemia [Recovering/Resolving]
  - Gastrointestinal haemorrhage [Recovering/Resolving]

NARRATIVE: CASE EVENT DATE: 20150220
